FAERS Safety Report 5370284-4 (Version None)
Quarter: 2007Q2

REPORT INFORMATION
  Report Type: 
  Country: None (occurrence: None)
  Receive Date: 20070626
  Receipt Date: 20070618
  Transmission Date: 20071010
  Serious: Yes (Other)
  Sender: FDA-Public Use
  Company Number: NZ-AVENTIS-200715527GDDC

PATIENT

DRUGS (2)
  1. ARAVA [Suspect]
     Dosage: DOSE: UNK
  2. ADALIMUMAB [Suspect]
     Dosage: DOSE: UNK

REACTIONS (1)
  - NEOPLASM MALIGNANT [None]
